FAERS Safety Report 8208524-6 (Version None)
Quarter: 2012Q1

REPORT INFORMATION
  Report Type: 
  Country: None (occurrence: None)
  Receive Date: 20120314
  Receipt Date: 20120309
  Transmission Date: 20120608
  Serious: No
  Sender: FDA-Public Use
  Company Number: DE-ROCHE-1041020

PATIENT
  Age: 45 Year
  Sex: Female

DRUGS (2)
  1. ACTEMRA [Suspect]
     Dosage: DOSE: INCREASED, LAST DOSE PRIOR TO SAE: 23/FEB/2010
     Route: 042
  2. ACTEMRA [Suspect]
     Indication: RHEUMATOID ARTHRITIS
     Route: 042
     Dates: start: 20091116

REACTIONS (1)
  - ACUTE TONSILLITIS [None]
